FAERS Safety Report 6394132-9 (Version None)
Quarter: 2009Q4

REPORT INFORMATION
  Report Type: 
  Country: None (occurrence: None)
  Receive Date: 20091008
  Receipt Date: 20091001
  Transmission Date: 20100525
  Serious: Yes (Death)
  Sender: FDA-Public Use
  Company Number: ZA-ABBOTT-09P-143-0600188-00

PATIENT
  Sex: Male

DRUGS (1)
  1. LUCRIN DEPOT FOR INJECTION [Suspect]
     Indication: PROSTATE CANCER
     Dates: end: 20090901

REACTIONS (1)
  - PULMONARY EMBOLISM [None]
